FAERS Safety Report 11231895 (Version 1)
Quarter: 2015Q3

REPORT INFORMATION
  Report Type: Spontaneous
  Country: US (occurrence: US)
  Receive Date: 20150701
  Receipt Date: 20150701
  Transmission Date: 20151125
  Serious: Yes (Other)
  Sender: FDA-Public Use
  Company Number: US-MYLANLABS-2015M1021807

PATIENT

DRUGS (1)
  1. DOXORUBICIN [Suspect]
     Active Substance: DOXORUBICIN
     Indication: BREAST CANCER METASTATIC
     Dosage: 100-300 MICROM/75MG DOXORUBICIN
     Route: 065

REACTIONS (6)
  - Skin mass [Recovering/Resolving]
  - Skin plaque [Recovering/Resolving]
  - Skin ulcer [Recovering/Resolving]
  - Embolism [Recovering/Resolving]
  - Transaminases increased [Recovering/Resolving]
  - Pain of skin [Recovering/Resolving]
